FAERS Safety Report 14771694 (Version 1)
Quarter: 2018Q2

REPORT INFORMATION
  Report Type: Spontaneous
  Country: US (occurrence: US)
  Receive Date: 20180417
  Receipt Date: 20180417
  Transmission Date: 20180711
  Serious: No
  Sender: FDA-Public Use
  Company Number: US-ALLERGAN-1768693US

PATIENT
  Age: 50 Year
  Sex: Female

DRUGS (2)
  1. LATISSE [Suspect]
     Active Substance: BIMATOPROST
     Indication: GROWTH OF EYELASHES
     Dosage: 2 GTT, QHS
     Route: 061
     Dates: start: 2015
  2. LATISSE [Suspect]
     Active Substance: BIMATOPROST
     Dosage: 2 GTT, QHS
     Route: 061
     Dates: start: 2015

REACTIONS (7)
  - Swelling face [Recovered/Resolved]
  - Dry skin [Recovered/Resolved]
  - Product quality issue [Unknown]
  - Swelling [Recovered/Resolved]
  - Erythema [Recovered/Resolved]
  - Wrong technique in product usage process [Unknown]
  - Eyelid oedema [Recovered/Resolved]

NARRATIVE: CASE EVENT DATE: 20171126
